FAERS Safety Report 25126636 (Version 2)
Quarter: 2025Q2

REPORT INFORMATION
  Report Type: Spontaneous
  Country: HR (occurrence: HR)
  Receive Date: 20250327
  Receipt Date: 20250404
  Transmission Date: 20250717
  Serious: Yes (Other)
  Sender: NOVARTIS
  Company Number: HR-002147023-NVSC2025HR043107

PATIENT
  Age: 50 Year
  Sex: Male

DRUGS (5)
  1. PAZOPANIB [Interacting]
     Active Substance: PAZOPANIB
     Indication: Clear cell renal cell carcinoma
     Dosage: 800 MG, QD (ON EMPTY STOMACH)
     Route: 048
  2. PAZOPANIB [Interacting]
     Active Substance: PAZOPANIB
     Dosage: 400 MG, QD
     Route: 048
  3. PAZOPANIB [Interacting]
     Active Substance: PAZOPANIB
     Dosage: 800 MG, QD
     Route: 048
  4. MESALAMINE [Concomitant]
     Active Substance: MESALAMINE
     Indication: Colitis ulcerative
     Route: 065
  5. PAMIDRONIC ACID [Concomitant]
     Active Substance: PAMIDRONIC ACID
     Indication: Product used for unknown indication
     Route: 065

REACTIONS (9)
  - Clear cell renal cell carcinoma [Unknown]
  - Malignant neoplasm progression [Unknown]
  - Metastases to central nervous system [Unknown]
  - Blood pressure increased [Unknown]
  - Stomatitis [Recovered/Resolved]
  - Drug interaction [Unknown]
  - Intentional product misuse [Unknown]
  - Food interaction [Unknown]
  - Drug ineffective [Unknown]
